FAERS Safety Report 25716642 (Version 2)
Quarter: 2025Q4

REPORT INFORMATION
  Report Type: Report from Study
  Country: EU (occurrence: EU)
  Receive Date: 20250822
  Receipt Date: 20251208
  Transmission Date: 20260119
  Serious: Yes (Other)
  Sender: TORRENT PHARMA INC.
  Company Number: None

PATIENT
  Age: 34 Year
  Sex: Female

DRUGS (5)
  1. PREGABALIN [Suspect]
     Active Substance: PREGABALIN
     Indication: Product used for unknown indication
     Dosage: UNKNOWN
     Route: 065
  2. .ALPHA.-PYRROLIDINOVALEROTHIOPHENONE [Suspect]
     Active Substance: .ALPHA.-PYRROLIDINOVALEROTHIOPHENONE
     Indication: Product used for unknown indication
     Dosage: UNKNOWN
     Route: 065
  3. ALCOHOL [Suspect]
     Active Substance: ALCOHOL
     Indication: Product used for unknown indication
     Dosage: UNKNOWN
     Route: 065
  4. LORAZEPAM [Suspect]
     Active Substance: LORAZEPAM
     Indication: Product used for unknown indication
     Dosage: UNKNOWN
     Route: 065
  5. METHYLPHENIDATE ACID [Suspect]
     Active Substance: METHYLPHENIDATE ACID
     Indication: Product used for unknown indication
     Dosage: UNKNOWN
     Route: 065

REACTIONS (14)
  - Mydriasis [Unknown]
  - Dysarthria [Unknown]
  - Drug abuse [Unknown]
  - Restlessness [Unknown]
  - Vestibular disorder [Unknown]
  - Logorrhoea [Unknown]
  - Nervousness [Unknown]
  - Mental disorder [Unknown]
  - Agitation [Unknown]
  - Obsessive thoughts [Unknown]
  - Abnormal behaviour [Unknown]
  - Defiant behaviour [Unknown]
  - Communication disorder [Unknown]
  - Psychomotor skills impaired [Unknown]
